FAERS Safety Report 22897857 (Version 2)
Quarter: 2023Q4

REPORT INFORMATION
  Report Type: Spontaneous
  Country: US (occurrence: US)
  Receive Date: 20230903
  Receipt Date: 20231020
  Transmission Date: 20240109
  Serious: No
  Sender: FDA-Public Use
  Company Number: US-PHARMAESSENTIA CORPORATION-US-2023-PEC-001679

PATIENT
  Sex: Female

DRUGS (3)
  1. BESREMI [Suspect]
     Active Substance: ROPEGINTERFERON ALFA-2B-NJFT
     Indication: Polycythaemia vera
     Dosage: 50 MCG, Q2W
     Route: 058
     Dates: start: 20230329
  2. HYDROXYUREA [Concomitant]
     Active Substance: HYDROXYUREA
     Indication: Product used for unknown indication
     Dosage: UNK
     Route: 065
  3. HYDROXYUREA [Concomitant]
     Active Substance: HYDROXYUREA
     Dosage: UNK, INCREASED DOSE
     Route: 065

REACTIONS (5)
  - Drug ineffective [Unknown]
  - Platelet count increased [Not Recovered/Not Resolved]
  - Cough [Not Recovered/Not Resolved]
  - Pyrexia [Unknown]
  - Chills [Unknown]

NARRATIVE: CASE EVENT DATE: 20230601
